FAERS Safety Report 4266207-1 (Version None)
Quarter: 2004Q1

REPORT INFORMATION
  Report Type: 
  Country: None (occurrence: None)
  Receive Date: 20040106
  Receipt Date: 20031229
  Transmission Date: 20041129
  Serious: Yes (Life-Threatening)
  Sender: FDA-Public Use
  Company Number: 2003UW17222

PATIENT
  Age: 72 Year
  Sex: Male

DRUGS (2)
  1. ELAVIL [Suspect]
     Indication: POST HERPETIC NEURALGIA
     Dosage: 30 MG DAILY PO
     Route: 048
     Dates: start: 20031101, end: 20031209
  2. TRICHLORMETHIAZIDE [Suspect]
     Indication: HYPERTENSION
     Dates: start: 20010101, end: 20031213

REACTIONS (2)
  - HYPOKALAEMIA [None]
  - HYPONATRAEMIA [None]
